FAERS Safety Report 15264626 (Version 1)
Quarter: 2018Q3

REPORT INFORMATION
  Report Type: Spontaneous
  Country: US (occurrence: US)
  Receive Date: 20180723
  Receipt Date: 20180723
  Transmission Date: 20181010
  Serious: Yes (Other)
  Sender: FDA-Public Use
  Company Number: None

PATIENT
  Age: 37 Year
  Sex: Female
  Weight: 80.1 kg

DRUGS (12)
  1. IBUPROFEN. [Concomitant]
     Active Substance: IBUPROFEN
  2. KLONIPIN [Concomitant]
     Active Substance: CLONAZEPAM
  3. MAXALT [Concomitant]
     Active Substance: RIZATRIPTAN BENZOATE
  4. BENADRYL [Concomitant]
     Active Substance: DIPHENHYDRAMINE HYDROCHLORIDE
  5. IMODIUM [Concomitant]
     Active Substance: LOPERAMIDE HYDROCHLORIDE
  6. GABAPENTIN. [Concomitant]
     Active Substance: GABAPENTIN
  7. TOPAMAX [Concomitant]
     Active Substance: TOPIRAMATE
  8. SEROQUEL [Concomitant]
     Active Substance: QUETIAPINE FUMARATE
  9. FARXIGA [Suspect]
     Active Substance: DAPAGLIFLOZIN PROPANEDIOL
     Indication: TYPE 2 DIABETES MELLITUS
     Dosage: ?          QUANTITY:30 TABLET(S);?
     Route: 048
     Dates: start: 20180717, end: 20180722
  10. PROZAC [Concomitant]
     Active Substance: FLUOXETINE HYDROCHLORIDE
  11. REXULTI [Concomitant]
     Active Substance: BREXPIPRAZOLE
  12. DEPAKOTE [Concomitant]
     Active Substance: DIVALPROEX SODIUM

REACTIONS (1)
  - Generalised tonic-clonic seizure [None]

NARRATIVE: CASE EVENT DATE: 20180719
